FAERS Safety Report 20171820 (Version 1)
Quarter: 2021Q4

REPORT INFORMATION
  Report Type: Spontaneous
  Country: JP (occurrence: JP)
  Receive Date: 20211210
  Receipt Date: 20211210
  Transmission Date: 20220304
  Serious: Yes (Hospitalization)
  Sender: FDA-Public Use
  Company Number: JP-NOVARTISPH-NVSJ2021JP020231

PATIENT
  Sex: Male

DRUGS (3)
  1. OCTREOTIDE ACETATE [Suspect]
     Active Substance: OCTREOTIDE ACETATE
     Indication: Carcinoid syndrome
     Dosage: 30 MG
     Route: 030
     Dates: start: 202111
  2. OCTREOTIDE ACETATE [Suspect]
     Active Substance: OCTREOTIDE ACETATE
     Indication: Neuroendocrine tumour
  3. OCTREOTIDE ACETATE [Suspect]
     Active Substance: OCTREOTIDE ACETATE

REACTIONS (1)
  - Carcinoid crisis [Recovering/Resolving]

NARRATIVE: CASE EVENT DATE: 20211204
